FAERS Safety Report 14766553 (Version 1)
Quarter: 2018Q2

REPORT INFORMATION
  Report Type: Report from Study
  Country: None (occurrence: IT)
  Receive Date: 20180416
  Receipt Date: 20180416
  Transmission Date: 20180711
  Serious: Yes (Death)
  Sender: FDA-Public Use
  Company Number: IT-ABBVIE-18K-083-2323816-00

PATIENT
  Sex: Female

DRUGS (1)
  1. DUODOPA [Suspect]
     Active Substance: CARBIDOPA\LEVODOPA
     Indication: PARKINSON^S DISEASE
     Dosage: MD 0,7+3?CR 2,7?ED 2
     Route: 050
     Dates: start: 20121217, end: 20180413

REACTIONS (2)
  - Renal failure [Fatal]
  - Respiratory failure [Fatal]
